FAERS Safety Report 13806215 (Version 1)
Quarter: 2017Q3

REPORT INFORMATION
  Report Type: Spontaneous
  Country: RU (occurrence: RU)
  Receive Date: 20170728
  Receipt Date: 20170728
  Transmission Date: 20171127
  Serious: Yes (Hospitalization)
  Sender: FDA-Public Use
  Company Number: RU-JNJFOC-20170718903

PATIENT
  Sex: Female

DRUGS (3)
  1. DETRALEX [Concomitant]
     Active Substance: DIOSMIN\HESPERIDIN
     Route: 065
  2. DROSPIRENONE AND ETHINYL ESTRADIOL [Suspect]
     Active Substance: DROSPIRENONE\ETHINYL ESTRADIOL
     Indication: PRODUCT USED FOR UNKNOWN INDICATION
     Route: 065
     Dates: start: 201502
  3. XARELTO [Suspect]
     Active Substance: RIVAROXABAN
     Indication: PRODUCT USED FOR UNKNOWN INDICATION
     Route: 048

REACTIONS (5)
  - Cystitis [Recovered/Resolved]
  - Food poisoning [Unknown]
  - Cystitis [Recovered/Resolved]
  - Headache [Unknown]
  - Body temperature increased [Unknown]

NARRATIVE: CASE EVENT DATE: 201703
